FAERS Safety Report 9869178 (Version 15)
Quarter: 2015Q1

REPORT INFORMATION
  Report Type: Report from Study
  Country: CA (occurrence: CA)
  Receive Date: 20140205
  Receipt Date: 20150318
  Transmission Date: 20150721
  Serious: Yes (Hospitalization, Other)
  Sender: FDA-Public Use
  Company Number: CA-ROCHE-1167570

PATIENT
  Age: 63 Year
  Sex: Male
  Weight: 99.3 kg

DRUGS (17)
  1. ACETYLCYSTEINE. [Concomitant]
     Active Substance: ACETYLCYSTEINE
     Indication: PRODUCTIVE COUGH
  2. DIPHENHYDRAMINE HCL [Concomitant]
     Active Substance: DIPHENHYDRAMINE HYDROCHLORIDE
     Indication: PREMEDICATION
     Route: 048
     Dates: start: 20110516
  3. GLICLAZIDE [Concomitant]
     Active Substance: GLICLAZIDE
  4. RITUXAN [Suspect]
     Active Substance: RITUXIMAB
     Indication: RHEUMATOID ARTHRITIS
     Dosage: FREQUENCY : DAY 1, DAY 15.?LAST DOSE PRIOR TO SAE: 05/AUG/2014
     Route: 042
     Dates: start: 20110516
  5. SOLU-MEDROL [Concomitant]
     Active Substance: METHYLPREDNISOLONE SODIUM SUCCINATE
     Indication: PREMEDICATION
     Route: 042
     Dates: start: 20110516
  6. RITUXAN [Suspect]
     Active Substance: RITUXIMAB
     Dosage: FREQUENCY : DAY 1, DAY 15.
     Route: 042
     Dates: start: 20130605
  7. ALENDRONATE [Concomitant]
     Active Substance: ALENDRONATE SODIUM
  8. ADVAIR HFA [Concomitant]
     Active Substance: FLUTICASONE PROPIONATE\SALMETEROL XINAFOATE
  9. BENADRYL + KAOPECTATE SOLUTION [Concomitant]
     Indication: PREMEDICATION
     Route: 048
     Dates: start: 20110516
  10. PREDNISONE. [Concomitant]
     Active Substance: PREDNISONE
     Dosage: INCREASED DOSE
     Route: 065
     Dates: start: 201312
  11. RITUXAN [Suspect]
     Active Substance: RITUXIMAB
     Dosage: FREQUENCY : DAY 1, DAY 15.
     Route: 042
     Dates: start: 20121203
  12. METHYLPREDNISOLONE. [Concomitant]
     Active Substance: METHYLPREDNISOLONE
     Indication: PREMEDICATION
     Route: 042
     Dates: start: 20110516
  13. RITUXAN [Suspect]
     Active Substance: RITUXIMAB
     Route: 042
     Dates: start: 20150312
  14. TECTA [Concomitant]
     Active Substance: PANTOPRAZOLE MAGNESIUM
  15. ACETAMINOPHEN. [Concomitant]
     Active Substance: ACETAMINOPHEN
     Indication: PREMEDICATION
     Route: 048
     Dates: start: 20110516
  16. TYLENOL [Concomitant]
     Active Substance: ACETAMINOPHEN
     Indication: PREMEDICATION
     Route: 042
     Dates: start: 20110516
  17. METFORMIN [Concomitant]
     Active Substance: METFORMIN HYDROCHLORIDE

REACTIONS (11)
  - Nasopharyngitis [Not Recovered/Not Resolved]
  - Oxygen saturation decreased [Unknown]
  - Pulmonary pain [Unknown]
  - Lung infection [Not Recovered/Not Resolved]
  - Infusion related reaction [Unknown]
  - Splenomegaly [Unknown]
  - Heart rate irregular [Unknown]
  - Lower respiratory tract infection [Unknown]
  - Gastric haemorrhage [Recovering/Resolving]
  - Pulmonary fibrosis [Not Recovered/Not Resolved]
  - Dyspnoea [Unknown]

NARRATIVE: CASE EVENT DATE: 201212
